FAERS Safety Report 21272764 (Version 3)
Quarter: 2023Q4

REPORT INFORMATION
  Report Type: Other
  Country: CA (occurrence: None)
  Receive Date: 20220831
  Receipt Date: 20231026
  Transmission Date: 20240109
  Serious: No
  Sender: FDA-Public Use
  Company Number: CA-ROCHE-3170157

PATIENT
  Sex: Female

DRUGS (3)
  1. OCREVUS [Suspect]
     Active Substance: OCRELIZUMAB
     Indication: Relapsing-remitting multiple sclerosis
     Dosage: 600 MG EVERY 6 MONTH
     Route: 042
     Dates: start: 20190326
  2. GABAPENTIN [Concomitant]
     Active Substance: GABAPENTIN
  3. VITAMIN D [Concomitant]
     Active Substance: VITAMIN D NOS

REACTIONS (3)
  - COVID-19 [Recovered/Resolved]
  - Therapeutic response decreased [Unknown]
  - Fatigue [Unknown]
